FAERS Safety Report 11784221 (Version 3)
Quarter: 2016Q1

REPORT INFORMATION
  Report Type: Report from Study
  Country: IQ (occurrence: IQ)
  Receive Date: 20151128
  Receipt Date: 20160225
  Transmission Date: 20160525
  Serious: No
  Sender: FDA-Public Use
  Company Number: PHHY2015IQ117962

PATIENT
  Sex: Male

DRUGS (1)
  1. TASIGNA [Suspect]
     Active Substance: NILOTINIB
     Indication: CHRONIC MYELOID LEUKAEMIA
     Dosage: 800 MG, QD PER DAY
     Route: 048
     Dates: start: 2013

REACTIONS (9)
  - Mouth ulceration [Not Recovered/Not Resolved]
  - Cough [Recovering/Resolving]
  - Dyspnoea [Unknown]
  - Vomiting [Recovered/Resolved]
  - Rash [Unknown]
  - Increased appetite [Unknown]
  - Hypersensitivity [Recovering/Resolving]
  - Furuncle [Not Recovered/Not Resolved]
  - Weight increased [Not Recovered/Not Resolved]

NARRATIVE: CASE EVENT DATE: 20160201
